FAERS Safety Report 7280815-5 (Version None)
Quarter: 2011Q1

REPORT INFORMATION
  Report Type: 
  Country: None (occurrence: None)
  Receive Date: 20110208
  Receipt Date: 20110204
  Transmission Date: 20110831
  Serious: Yes (Other)
  Sender: FDA-Public Use
  Company Number: TN-BRISTOL-MYERS SQUIBB COMPANY-15518939

PATIENT
  Age: 34 Year
  Sex: Male

DRUGS (4)
  1. AMOXICILLIN AND CLAVULANATE POTASSIUM [Suspect]
     Indication: LYMPHADENITIS
  2. ACETAMINOPHEN [Suspect]
     Indication: LYMPHADENITIS
  3. AMOXICILLIN [Suspect]
  4. CARBAMAZEPINE [Suspect]
     Indication: EPILEPSY

REACTIONS (2)
  - HYPERSENSITIVITY [None]
  - DRUG RASH WITH EOSINOPHILIA AND SYSTEMIC SYMPTOMS [None]
